FAERS Safety Report 7957129-0 (Version None)
Quarter: 2011Q4

REPORT INFORMATION
  Report Type: 
  Country: None (occurrence: None)
  Receive Date: 20111205
  Receipt Date: 20111124
  Transmission Date: 20120403
  Serious: Yes (Hospitalization)
  Sender: FDA-Public Use
  Company Number: IN-ROCHE-784642

PATIENT
  Sex: Female
  Weight: 66 kg

DRUGS (13)
  1. MENTHOL [Concomitant]
  2. ACETAMINOPHEN [Concomitant]
  3. VITAMINS AND MINERALS [Concomitant]
  4. SHELCAL [Concomitant]
     Dates: start: 20110608, end: 20110709
  5. XELODA [Suspect]
     Indication: BREAST CANCER
     Dosage: CYCLICAL CAPECITABINE (CAPECITABINE) FILM-COATED TABLET
     Route: 048
     Dates: start: 20110427, end: 20110531
  6. XELODA [Suspect]
     Dosage: CYCLICAL,FILM-COATED TABLET
     Route: 048
  7. LINSEED [Concomitant]
     Dosage: DRUG: LINSEED OIL
  8. TRAMADOL HCL [Concomitant]
  9. ALCOHOL [Concomitant]
  10. DICLOFENAC DIETHYLAMINE [Concomitant]
  11. METHYL SALICYLATE [Concomitant]
  12. GENERIC COMPONENT(S) NOT KNOWN [Concomitant]
  13. ZOMETA [Concomitant]
     Dates: start: 20110220

REACTIONS (3)
  - DIARRHOEA [None]
  - ANAEMIA [None]
  - HYPOALBUMINAEMIA [None]
